FAERS Safety Report 16026022 (Version 1)
Quarter: 2019Q1

REPORT INFORMATION
  Report Type: Spontaneous
  Country: IT (occurrence: IT)
  Receive Date: 20190302
  Receipt Date: 20190302
  Transmission Date: 20190418
  Serious: Yes (Hospitalization, Other)
  Sender: FDA-Public Use
  Company Number: IT-AUROBINDO-AUR-APL-2019-009452

PATIENT

DRUGS (9)
  1. LASONIL (HEPARIN SODIUM) [Suspect]
     Active Substance: HEPARIN SODIUM
     Indication: INTENTIONAL SELF-INJURY
     Dosage: UNK
     Route: 065
     Dates: start: 20170917, end: 20170917
  2. TACHIDOL [Suspect]
     Active Substance: ACETAMINOPHEN\CODEINE PHOSPHATE
     Indication: INTENTIONAL SELF-INJURY
     Dosage: UNK
     Route: 065
     Dates: start: 20170917, end: 20170917
  3. CEFIXIME. [Suspect]
     Active Substance: CEFIXIME
     Indication: INTENTIONAL SELF-INJURY
     Dosage: UNK
     Route: 065
     Dates: start: 20170917, end: 20170917
  4. BRUFEN [Suspect]
     Active Substance: IBUPROFEN
     Indication: INTENTIONAL SELF-INJURY
     Dosage: UNK
     Route: 065
     Dates: start: 20170917, end: 20170917
  5. MACLADIN [Suspect]
     Active Substance: CLARITHROMYCIN
     Indication: INTENTIONAL SELF-INJURY
     Dosage: UNK
     Route: 065
     Dates: start: 20170917, end: 20170917
  6. TACHIPIRINA [Suspect]
     Active Substance: ACETAMINOPHEN
     Indication: INTENTIONAL SELF-INJURY
     Dosage: UNK
     Route: 065
     Dates: start: 20170917, end: 20170917
  7. ZANTIPRES [Suspect]
     Active Substance: ZOFENOPRIL
     Indication: INTENTIONAL SELF-INJURY
     Dosage: UNK
     Route: 065
     Dates: start: 20170917, end: 20170917
  8. ACTIGRIP [Suspect]
     Active Substance: ACETAMINOPHEN\PSEUDOEPHEDRINE HYDROCHLORIDE\TRIPROLIDINE HYDROCHLORIDE
     Indication: INTENTIONAL SELF-INJURY
     Dosage: UNK
     Route: 065
     Dates: start: 20170917, end: 20170917
  9. UNIXIME [Suspect]
     Active Substance: CEFIXIME
     Indication: INTENTIONAL SELF-INJURY
     Dosage: UNK
     Route: 065
     Dates: start: 20170917, end: 20170917

REACTIONS (5)
  - Drug abuse [Unknown]
  - Tachycardia [Unknown]
  - Intentional self-injury [Unknown]
  - Vomiting [Unknown]
  - Sluggishness [Unknown]

NARRATIVE: CASE EVENT DATE: 20170917
